FAERS Safety Report 24837388 (Version 2)
Quarter: 2025Q1

REPORT INFORMATION
  Report Type: Spontaneous
  Country: ES (occurrence: ES)
  Receive Date: 20250113
  Receipt Date: 20250130
  Transmission Date: 20250409
  Serious: Yes (Death, Hospitalization, Other)
  Sender: PFIZER
  Company Number: ES-ROCHE-10000148295

PATIENT
  Age: 54 Year
  Sex: Male

DRUGS (7)
  1. BEVACIZUMAB [Suspect]
     Active Substance: BEVACIZUMAB
     Indication: Hepatocellular carcinoma
     Dates: start: 202112
  2. ATEZOLIZUMAB [Suspect]
     Active Substance: ATEZOLIZUMAB
     Indication: Hepatocellular carcinoma
     Dates: start: 202112
  3. THIAMINE [Concomitant]
     Active Substance: THIAMINE
  4. PYRIDOXINE [Concomitant]
     Active Substance: PYRIDOXINE
  5. CYANOCOBALAMIN [Concomitant]
     Active Substance: CYANOCOBALAMIN
  6. CLORAZEPATE MONOPOTASSIUM [Concomitant]
     Active Substance: CLORAZEPATE MONOPOTASSIUM
  7. WILZIN [Concomitant]
     Active Substance: ZINC ACETATE
     Dosage: 50 MG, 3X/DAY

REACTIONS (7)
  - Death [Fatal]
  - Haematemesis [Recovered/Resolved]
  - Pulmonary embolism [Unknown]
  - Neoplasm progression [Unknown]
  - Vomiting [Unknown]
  - Headache [Unknown]
  - Off label use [Unknown]

NARRATIVE: CASE EVENT DATE: 20211201
